FAERS Safety Report 10182909 (Version 1)
Quarter: 2014Q2

REPORT INFORMATION
  Report Type: Spontaneous
  Country: US (occurrence: US)
  Receive Date: 20140520
  Receipt Date: 20140520
  Transmission Date: 20141212
  Serious: Yes (Other)
  Sender: FDA-Public Use
  Company Number: US-PFIZER INC-2014136119

PATIENT
  Sex: Female

DRUGS (3)
  1. MORPHINE SULFATE [Suspect]
     Dosage: UNK
     Route: 065
  2. HYDROMORPHONE HYDROCHLORIDE [Suspect]
     Route: 065
  3. FENTANYL [Suspect]
     Indication: DRUG DEPENDENCE
     Dosage: UNK

REACTIONS (2)
  - Drug dependence [Unknown]
  - Drug abuse [Unknown]
